FAERS Safety Report 9911634 (Version 1)
Quarter: 2014Q1

REPORT INFORMATION
  Report Type: Report from Study
  Country: US (occurrence: US)
  Receive Date: 20140219
  Receipt Date: 20140219
  Transmission Date: 20141002
  Serious: Yes (Hospitalization)
  Sender: FDA-Public Use
  Company Number: PHHY2014US017820

PATIENT
  Age: 81 Year
  Sex: Female

DRUGS (5)
  1. EVEROLIMUS [Suspect]
     Indication: OVARIAN EPITHELIAL CANCER
     Dosage: 10 MG, DAILY
     Route: 048
     Dates: start: 20120412
  2. EVEROLIMUS [Suspect]
     Indication: OFF LABEL USE
  3. BEVACIZUMAB [Suspect]
     Indication: OVARIAN EPITHELIAL CANCER
     Dosage: DAY 1 AND DAY 15
     Route: 042
     Dates: start: 20120412
  4. ADVAIR [Concomitant]
  5. LISINOPRIL [Concomitant]
     Dosage: 10 MG, DAILY

REACTIONS (6)
  - Ileus [Unknown]
  - Abdominal pain lower [Recovered/Resolved with Sequelae]
  - Vomiting [Unknown]
  - Hypertension [Recovered/Resolved with Sequelae]
  - Neutropenia [Unknown]
  - Thrombocytopenia [Unknown]
